FAERS Safety Report 8211961 (Version 3)
Quarter: 2012Q4

REPORT INFORMATION
  Report Type: Spontaneous
  Country: US (occurrence: None)
  Receive Date: 20111020
  Receipt Date: 20121010
  Transmission Date: 20130627
  Serious: Yes (Other)
  Sender: FDA-Public Use
  Company Number: 2011MA014742

PATIENT
  Sex: Male
  Weight: 77.11 kg

DRUGS (7)
  1. METOCLOPRAMIDE [Suspect]
     Indication: GERD
     Dosage: 10 mg; 30 min AC; Tablet; PO
     Dates: start: 20071213, end: 20091203
  2. OMEPRAZOLE [Concomitant]
  3. MAALOX [Concomitant]
  4. PEPCID [Concomitant]
  5. MYLANTA [Concomitant]
  6. TUMS [Concomitant]
  7. TAGAMET [Concomitant]

REACTIONS (6)
  - Tremor [None]
  - Musculoskeletal stiffness [None]
  - Benign prostatic hyperplasia [None]
  - Tardive dyskinesia [None]
  - Emotional disorder [None]
  - Economic problem [None]
